FAERS Safety Report 9033341 (Version 3)
Quarter: 2015Q3

REPORT INFORMATION
  Report Type: Spontaneous
  Country: US (occurrence: US)
  Receive Date: 20130128
  Receipt Date: 20150918
  Transmission Date: 20151125
  Serious: No
  Sender: FDA-Public Use
  Company Number: US-009507513-1301USA011208

PATIENT
  Sex: Male

DRUGS (3)
  1. FINASTERIDE. [Suspect]
     Active Substance: FINASTERIDE
     Indication: ALOPECIA
     Dosage: 1 MG, QD
     Route: 048
     Dates: start: 20130917, end: 201410
  2. FINASTERIDE. [Suspect]
     Active Substance: FINASTERIDE
     Dosage: 5 MG, QD
     Route: 048
     Dates: start: 20100409
  3. PROPECIA [Suspect]
     Active Substance: FINASTERIDE
     Indication: ALOPECIA
     Dosage: 1 MG, QD
     Route: 048
     Dates: start: 20020708, end: 201202

REACTIONS (10)
  - Hypertension [Unknown]
  - Anxiety [Unknown]
  - Semen volume decreased [Unknown]
  - Cognitive disorder [Not Recovered/Not Resolved]
  - Erectile dysfunction [Unknown]
  - Libido decreased [Unknown]
  - Cyst [Unknown]
  - Drug administration error [Unknown]
  - Sexual dysfunction [Not Recovered/Not Resolved]
  - Depression [Unknown]

NARRATIVE: CASE EVENT DATE: 2002
